FAERS Safety Report 7665450-9 (Version None)
Quarter: 2011Q3

REPORT INFORMATION
  Report Type: 
  Country: None (occurrence: None)
  Receive Date: 20110806
  Receipt Date: 20110323
  Transmission Date: 20111222
  Serious: No
  Sender: FDA-Public Use
  Company Number: US-ABBOTT-11P-163-0713610-00

PATIENT
  Sex: Female
  Weight: 59.02 kg

DRUGS (4)
  1. HORMONE CREAM [Concomitant]
     Indication: PRODUCT USED FOR UNKNOWN INDICATION
  2. CALCITRIOL [Concomitant]
     Indication: PRODUCT USED FOR UNKNOWN INDICATION
  3. NIASPAN [Suspect]
     Indication: HIGH DENSITY LIPOPROTEIN DECREASED
     Dosage: AT BEDTIME
     Dates: start: 20100901
  4. VITAMIN TAB [Concomitant]
     Indication: PRODUCT USED FOR UNKNOWN INDICATION

REACTIONS (4)
  - PRURITUS [None]
  - BURNING SENSATION [None]
  - PARAESTHESIA [None]
  - FLUSHING [None]
